FAERS Safety Report 5738720-9 (Version None)
Quarter: 2008Q2

REPORT INFORMATION
  Report Type: 
  Country: None (occurrence: None)
  Receive Date: 20080515
  Receipt Date: 20080506
  Transmission Date: 20081010
  Serious: Yes (Other)
  Sender: FDA-Public Use
  Company Number: US-JNJFOC-20080501570

PATIENT
  Sex: Female

DRUGS (3)
  1. REMICADE [Suspect]
     Indication: CROHN'S DISEASE
     Route: 042
  2. METHOTREXATE [Concomitant]
  3. PREDNISONE TAB [Concomitant]
     Indication: PREMEDICATION

REACTIONS (4)
  - INFUSION RELATED REACTION [None]
  - LUPUS-LIKE SYNDROME [None]
  - RESPIRATORY ARREST [None]
  - SEPSIS [None]
